FAERS Safety Report 7440943-8 (Version None)
Quarter: 2011Q2

REPORT INFORMATION
  Report Type: 
  Country: None (occurrence: None)
  Receive Date: 20110427
  Receipt Date: 20110415
  Transmission Date: 20111010
  Serious: Yes (Disabling, Other)
  Sender: FDA-Public Use
  Company Number: PHHY2011CY14609

PATIENT
  Sex: Female
  Weight: 64 kg

DRUGS (5)
  1. METHOTREXATE [Concomitant]
     Dosage: 12.5 MG, ONE A WEEK (OAW)
     Route: 048
  2. FOLIC ACID [Concomitant]
     Dosage: 5 MG, TWICE WEEKLY
     Dates: start: 19990210
  3. MELOXICAM [Concomitant]
     Dosage: 15 MG, UNK
     Route: 048
     Dates: start: 19990210
  4. ACLASTA [Suspect]
     Indication: OSTEOPOROSIS
     Dosage: 5MG/100ML ONCE A YEAR
     Dates: start: 20091210
  5. ACLASTA [Suspect]
     Dosage: 5MG/100ML ONCE A YEAR
     Dates: start: 20101212

REACTIONS (1)
  - OSTEONECROSIS OF JAW [None]
